FAERS Safety Report 15151383 (Version 13)
Quarter: 2020Q3

REPORT INFORMATION
  Report Type: Spontaneous
  Country: US (occurrence: US)
  Receive Date: 20180716
  Receipt Date: 20200810
  Transmission Date: 20201102
  Serious: Yes (Hospitalization, Disabling, Congenital Anomaly)
  Sender: FDA-Public Use
  Company Number: US-ACTELION-A-NJ2018-175339

PATIENT
  Age: 2 Year
  Sex: Male
  Weight: 12.7 kg

DRUGS (32)
  1. ZANTAC [Concomitant]
     Active Substance: RANITIDINE HYDROCHLORIDE
     Dosage: 1.4 ML BID VIA J?UBE
  2. DICYCLOMINE HCL [Concomitant]
     Active Substance: DICYCLOMINE HYDROCHLORIDE
     Dosage: 10 MG, TID (SYRUP)
     Route: 048
  3. TRACLEER [Suspect]
     Active Substance: BOSENTAN
     Indication: PULMONARY HYPERTENSION
     Dosage: 31.25 MG VIA G?TUBE, Q12HRS
     Route: 048
     Dates: start: 2018
  4. ENALAPRIL [Suspect]
     Active Substance: ENALAPRIL
     Indication: PRODUCT USED FOR UNKNOWN INDICATION
     Dosage: 1 MG, BID
     Route: 065
     Dates: start: 2018, end: 20190517
  5. ALDACTONE [Concomitant]
     Active Substance: SPIRONOLACTONE
     Dosage: 2MG/KG/DAY
  6. FUROSEMIDE. [Concomitant]
     Active Substance: FUROSEMIDE
     Dosage: 1.5 ML VIA J TUBE
  7. LANSOPRAZOLE. [Concomitant]
     Active Substance: LANSOPRAZOLE
     Dosage: 7.5 MG, BID
  8. SILDENAFIL CITRATE. [Concomitant]
     Active Substance: SILDENAFIL CITRATE
  9. AMOXICILLIN. [Concomitant]
     Active Substance: AMOXICILLIN
     Dosage: 200 MG, QD
     Dates: start: 20200115
  10. TYLENOL [Concomitant]
     Active Substance: ACETAMINOPHEN
  11. BACTROBAN [Concomitant]
     Active Substance: MUPIROCIN\MUPIROCIN CALCIUM
     Dosage: 2 %, TID
  12. REVATIO [Concomitant]
     Active Substance: SILDENAFIL CITRATE
     Dosage: 10 MG, Q6HRS
  13. LEVALBUTEROL HCL [Concomitant]
     Active Substance: LEVALBUTEROL HYDROCHLORIDE
     Dosage: 0.31 MG, Q4HRS
  14. FAMOTIDINE. [Concomitant]
     Active Substance: FAMOTIDINE
     Dosage: 40 MG, BID
     Route: 048
     Dates: start: 20200521
  15. ZOFRAN [Concomitant]
     Active Substance: ONDANSETRON HYDROCHLORIDE
     Indication: PROPHYLAXIS OF NAUSEA AND VOMITING
     Dosage: 4 MG, TID/PRN
     Route: 048
  16. ASPIRIN. [Concomitant]
     Active Substance: ASPIRIN
     Dosage: 40.5 MG, QD
  17. CLONIDINE. [Concomitant]
     Active Substance: CLONIDINE
  18. FUROSEMIDE. [Concomitant]
     Active Substance: FUROSEMIDE
     Dosage: 15 MG
  19. MULTIPLE VITAMINS WITH MINERALS [Concomitant]
     Active Substance: MINERALS\VITAMINS
     Dosage: 1 CC VIA G?TUBE
  20. SPIRONOLACTONE. [Concomitant]
     Active Substance: SPIRONOLACTONE
     Dosage: 25 MG
     Dates: start: 20200317
  21. TRACLEER [Suspect]
     Active Substance: BOSENTAN
     Dosage: 62.5 MG, HALF TABLET, BID
     Route: 048
  22. ASPIRIN. [Concomitant]
     Active Substance: ASPIRIN
     Dosage: 81 MG, QD
     Dates: start: 20200115
  23. LASIX [Concomitant]
     Active Substance: FUROSEMIDE
     Dosage: 1.5 ML, BID
  24. FUROSEMIDE. [Concomitant]
     Active Substance: FUROSEMIDE
     Dosage: 1.2 ML BID VIA J?TUBE
  25. RANITIDINE. [Concomitant]
     Active Substance: RANITIDINE
     Dosage: 1.4 ML, BID
  26. PREVACID [Concomitant]
     Active Substance: LANSOPRAZOLE
     Dosage: 15 MG, BID
  27. OMEPRAZOLE. [Concomitant]
     Active Substance: OMEPRAZOLE
     Dosage: 15 MG, BID VIA G?TUBE
  28. REVATIO [Concomitant]
     Active Substance: SILDENAFIL CITRATE
     Dosage: 1.4 ML, TID VIA G?TUBE
  29. LASIX [Concomitant]
     Active Substance: FUROSEMIDE
     Dosage: 18 MG VIA J TUBE, BID
  30. KCL [Concomitant]
     Active Substance: POTASSIUM CHLORIDE
     Dosage: 20 MEQ, Q8H
  31. ERYTHROMYCIN ETHYLSUCCINATE. [Concomitant]
     Active Substance: ERYTHROMYCIN ETHYLSUCCINATE
     Dosage: 32 MG VIA G?TUBE, Q6 HRS
  32. MIRALAX [Concomitant]
     Active Substance: POLYETHYLENE GLYCOL 3350
     Dosage: 8.5 GM, VIA G?TUBE, BID, PRN

REACTIONS (56)
  - Acute kidney injury [Recovered/Resolved]
  - Oxygen saturation decreased [Unknown]
  - Respiratory distress [Unknown]
  - Condition aggravated [Recovering/Resolving]
  - Excessive granulation tissue [Unknown]
  - Gastroenteritis viral [Unknown]
  - Humerus fracture [Recovered/Resolved]
  - Pain in extremity [Recovered/Resolved]
  - Deformity [Recovered/Resolved]
  - Crying [Unknown]
  - Fluid retention [Unknown]
  - Erythema [Unknown]
  - Contusion [Recovered/Resolved]
  - Peripheral coldness [Unknown]
  - Renal injury [Unknown]
  - Feeling abnormal [Recovering/Resolving]
  - Bone disorder [Unknown]
  - Use of accessory respiratory muscles [Unknown]
  - Abdominal distension [Unknown]
  - Impaired gastric emptying [Unknown]
  - Ulna fracture [Recovered/Resolved]
  - Ecchymosis [Recovered/Resolved]
  - Aortic stenosis [Unknown]
  - Pyrexia [Recovering/Resolving]
  - Blood chloride decreased [Unknown]
  - Breath sounds abnormal [Unknown]
  - Lip dry [Unknown]
  - Fall [Unknown]
  - Oedema [Recovered/Resolved]
  - Diarrhoea [Recovering/Resolving]
  - Unevaluable event [Unknown]
  - Dehydration [Unknown]
  - Skin abrasion [Recovered/Resolved]
  - Poor peripheral circulation [Unknown]
  - Localised infection [Unknown]
  - Dyspnoea [Recovering/Resolving]
  - Vomiting [Recovering/Resolving]
  - Leukopenia [Unknown]
  - Wheezing [Unknown]
  - Gastrooesophageal reflux disease [Unknown]
  - Oxygen consumption increased [Recovering/Resolving]
  - Carbon dioxide increased [Unknown]
  - Irritability [Unknown]
  - Cough [Unknown]
  - Tachypnoea [Unknown]
  - Retching [Unknown]
  - Tenderness [Recovered/Resolved]
  - Skin turgor decreased [Unknown]
  - Emotional distress [Unknown]
  - Metapneumovirus infection [Recovering/Resolving]
  - Rhinorrhoea [Unknown]
  - Nausea [Unknown]
  - Cardiac murmur [Unknown]
  - Heterotaxia [Unknown]
  - Radius fracture [Recovered/Resolved]
  - Gastrostomy tube site complication [Unknown]

NARRATIVE: CASE EVENT DATE: 20191126
